FAERS Safety Report 21009457 (Version 5)
Quarter: 2022Q2

REPORT INFORMATION
  Report Type: Spontaneous
  Country: US (occurrence: US)
  Receive Date: 20220627
  Receipt Date: 20220627
  Transmission Date: 20220721
  Serious: No
  Sender: FDA-Public Use
  Company Number: ALC2021US003671

PATIENT
  Sex: Female

DRUGS (1)
  1. PATADAY ONCE DAILY RELIEF [Suspect]
     Active Substance: OLOPATADINE HYDROCHLORIDE
     Indication: Lacrimation increased
     Dosage: UNK
     Route: 065

REACTIONS (3)
  - Intentional product misuse [Unknown]
  - Product label confusion [Unknown]
  - Drug ineffective for unapproved indication [Unknown]
